FAERS Safety Report 23053341 (Version 5)
Quarter: 2024Q1

REPORT INFORMATION
  Report Type: Report from Study
  Country: US (occurrence: US)
  Receive Date: 20231011
  Receipt Date: 20240208
  Transmission Date: 20240410
  Serious: Yes (Other)
  Sender: FDA-Public Use
  Company Number: US-ABBVIE-5444533

PATIENT
  Sex: Female

DRUGS (4)
  1. SKYRIZI [Suspect]
     Active Substance: RISANKIZUMAB-RZAA
     Indication: Crohn^s disease
     Dosage: LAST ADMIN DATE- 2023
     Route: 058
     Dates: start: 20230313
  2. SKYRIZI [Suspect]
     Active Substance: RISANKIZUMAB-RZAA
     Dosage: LAST ADMIN DATE: JUN 2023
     Route: 058
     Dates: start: 20230617
  3. SKYRIZI [Suspect]
     Active Substance: RISANKIZUMAB-RZAA
     Route: 058
     Dates: start: 20230620
  4. SKYRIZI [Suspect]
     Active Substance: RISANKIZUMAB-RZAA
     Indication: Crohn^s disease
     Dosage: TIME INTERVAL: TOTAL
     Route: 042
     Dates: start: 2023, end: 2023

REACTIONS (8)
  - Breast abscess [Recovering/Resolving]
  - Breast abscess [Recovering/Resolving]
  - Abdominal pain [Not Recovered/Not Resolved]
  - Frequent bowel movements [Recovering/Resolving]
  - Mucous stools [Unknown]
  - Pain [Not Recovered/Not Resolved]
  - Breast oedema [Unknown]
  - Thyroid mass [Unknown]

NARRATIVE: CASE EVENT DATE: 20230101
